FAERS Safety Report 22352402 (Version 1)
Quarter: 2023Q2

REPORT INFORMATION
  Report Type: Spontaneous
  Country: US (occurrence: US)
  Receive Date: 20230522
  Receipt Date: 20230522
  Transmission Date: 20230722
  Serious: No
  Sender: FDA-Public Use
  Company Number: US-Merz Pharmaceuticals GmbH-23-01322

PATIENT
  Age: 69 Year
  Sex: Female

DRUGS (2)
  1. XEOMIN [Suspect]
     Active Substance: INCOBOTULINUMTOXINA
     Indication: Product used for unknown indication
     Dates: start: 20230419, end: 20230419
  2. COVID VACCINE [Concomitant]
     Indication: COVID-19 immunisation
     Dates: start: 2021, end: 2021

REACTIONS (2)
  - Drug ineffective [Unknown]
  - Condition aggravated [Unknown]

NARRATIVE: CASE EVENT DATE: 20230101
